FAERS Safety Report 6649301-7 (Version None)
Quarter: 2010Q1

REPORT INFORMATION
  Report Type: 
  Country: None (occurrence: None)
  Receive Date: 20100324
  Receipt Date: 20100319
  Transmission Date: 20100710
  Serious: Yes (Death, Hospitalization)
  Sender: FDA-Public Use
  Company Number: PHHY2010JP03634

PATIENT
  Sex: Male
  Weight: 52 kg

DRUGS (18)
  1. DIOVAN [Suspect]
     Indication: HYPERTENSION
     Dosage: 80 MG
     Route: 046
     Dates: start: 20080616
  2. DIOVAN [Suspect]
     Dosage: 40 MG, QD
     Route: 048
     Dates: start: 20080825, end: 20090420
  3. DIOVAN [Suspect]
     Dosage: 160 MG
     Route: 048
     Dates: start: 20090703, end: 20090807
  4. DIOVAN [Suspect]
     Dosage: 80 MG, QD
     Route: 048
     Dates: start: 20090904, end: 20091127
  5. LASIX [Concomitant]
     Dosage: 120 MG, UNK
     Route: 048
     Dates: start: 20090523
  6. LASIX [Concomitant]
     Dosage: 40 MG, TID , ONE TABLET IN THE EVENING)
     Route: 048
     Dates: start: 20090623
  7. FERROMIA [Concomitant]
     Route: 048
  8. JUVELA [Concomitant]
     Route: 048
  9. LUPRAC [Concomitant]
     Route: 048
  10. LANSOPRAZOLE [Concomitant]
     Dosage: 15 MG
     Route: 048
     Dates: start: 20090420
  11. CRAVIT [Concomitant]
     Route: 048
  12. ASPIRIN [Concomitant]
     Dosage: 100 MG
     Route: 048
     Dates: start: 20090427
  13. FERRUM ^GREEN CROSS^ [Concomitant]
     Dosage: 305 MG
     Route: 048
     Dates: start: 20090521
  14. NORVASC [Concomitant]
     Route: 048
  15. SALOBEL [Concomitant]
     Dosage: 100 MG
     Route: 048
     Dates: start: 20090601
  16. MAGMITT KENEI [Concomitant]
     Dosage: 1000 MG
     Route: 048
     Dates: start: 20090527
  17. PANSPORIN T [Concomitant]
     Route: 048
  18. NOVORAPID MIX [Concomitant]
     Dosage: 4 UNITS IN THE MORNING AND 6 UNITS IN THE EVENING
     Route: 058
     Dates: start: 20070701

REACTIONS (9)
  - CARDIAC FAILURE ACUTE [None]
  - CARDIO-RESPIRATORY ARREST [None]
  - DIABETIC GANGRENE [None]
  - DIABETIC NEPHROPATHY [None]
  - DISEASE PROGRESSION [None]
  - LOSS OF CONSCIOUSNESS [None]
  - OEDEMA [None]
  - RENAL FAILURE [None]
  - RETINOPATHY [None]
